FAERS Safety Report 17045220 (Version 1)
Quarter: 2019Q4

REPORT INFORMATION
  Report Type: Spontaneous
  Country: US (occurrence: US)
  Receive Date: 20191018
  Receipt Date: 20191018
  Transmission Date: 20200122
  Serious: No
  Sender: FDA-Public Use
  Company Number: None

PATIENT
  Sex: Female

DRUGS (1)
  1. NATPARA (PARATHYROID HORMONE) [Suspect]
     Active Substance: PARATHYROID HORMONE

REACTIONS (6)
  - Product quality issue [None]
  - Calcium metabolism disorder [None]
  - Product container seal issue [None]
  - Product contamination physical [None]
  - Fatigue [None]
  - Quality of life decreased [None]
